FAERS Safety Report 9174760 (Version 1)
Quarter: 2013Q1

REPORT INFORMATION
  Report Type: Spontaneous
  Country: BR (occurrence: None)
  Receive Date: 20130318
  Receipt Date: 20130318
  Transmission Date: 20140127
  Serious: Yes (Other)
  Sender: FDA-Public Use
  Company Number: ENTC2013-0097

PATIENT
  Age: 81 Year
  Sex: Female

DRUGS (1)
  1. STALEVO (LEVODOPA, CARBIDOPA, ENTACAPONE) [Suspect]
     Indication: NERVOUS SYSTEM DISORDER
     Dosage: 1 DF, DAILY; STRENGTH : 100 MG
     Route: 048

REACTIONS (4)
  - Diarrhoea [None]
  - Malaise [None]
  - Fibromyalgia [None]
  - Labyrinthitis [None]
